FAERS Safety Report 7354977-5 (Version None)
Quarter: 2011Q1

REPORT INFORMATION
  Report Type: 
  Country: None (occurrence: None)
  Receive Date: 20110316
  Receipt Date: 20110304
  Transmission Date: 20110831
  Serious: No
  Sender: FDA-Public Use
  Company Number: B0705035A

PATIENT
  Sex: Female

DRUGS (1)
  1. RELENZA [Suspect]
     Dosage: 20MG PER DAY
     Route: 055
     Dates: start: 20110304

REACTIONS (1)
  - DRUG EXPOSURE DURING PREGNANCY [None]
